FAERS Safety Report 6332975-8 (Version None)
Quarter: 2009Q3

REPORT INFORMATION
  Report Type: 
  Country: None (occurrence: None)
  Receive Date: 20090828
  Receipt Date: 20090817
  Transmission Date: 20100115
  Serious: Yes (Hospitalization)
  Sender: FDA-Public Use
  Company Number: PHHY2009ES34466

PATIENT
  Age: 81 Year
  Sex: Female

DRUGS (3)
  1. FIORINAL [Suspect]
     Indication: OSTEOARTHRITIS
     Dosage: 2 FULL DOSE
     Route: 048
     Dates: start: 20080101, end: 20090128
  2. ARTILOG [Concomitant]
     Indication: OSTEOARTHRITIS
     Dosage: 200 MG, QD
     Route: 048
     Dates: start: 20080101, end: 20090128
  3. DEXKETOPROFEN TROMETAMOL [Concomitant]
     Indication: OSTEOARTHRITIS
     Dosage: UNK
     Route: 061
     Dates: start: 20080101, end: 20090128

REACTIONS (1)
  - IRON DEFICIENCY ANAEMIA [None]
